FAERS Safety Report 17547107 (Version 2)
Quarter: 2020Q2

REPORT INFORMATION
  Report Type: Report from Study
  Country: US (occurrence: US)
  Receive Date: 20200316
  Receipt Date: 20200403
  Transmission Date: 20200713
  Serious: Yes (Hospitalization)
  Sender: FDA-Public Use
  Company Number: US-TAKEDA-2020TUS014074

PATIENT
  Age: 36 Year
  Sex: Female
  Weight: 70.8 kg

DRUGS (19)
  1. DEXAMETHASONE. [Concomitant]
     Active Substance: DEXAMETHASONE
     Dosage: 2 GTT DROPS, Q6HR
     Route: 047
  2. LEVOTHYROXINE. [Concomitant]
     Active Substance: LEVOTHYROXINE
     Dosage: 50 MICROGRAM, QD
     Route: 048
  3. FLUOCINONIDE. [Concomitant]
     Active Substance: FLUOCINONIDE
     Indication: ERYTHEMA
  4. IXAZOMIB [Suspect]
     Active Substance: IXAZOMIB
     Indication: ACUTE MYELOID LEUKAEMIA
     Dosage: 2.3 MILLIGRAM
     Route: 048
     Dates: start: 20200113, end: 20200307
  5. FISH OIL                           /00492901/ [Concomitant]
     Active Substance: COD LIVER OIL
     Dosage: 1000 MILLIGRAM, QD
     Route: 048
  6. LORATADINE. [Concomitant]
     Active Substance: LORATADINE
     Dosage: 10 MILLIGRAM
     Route: 048
  7. VITAMIN D                          /00107901/ [Concomitant]
     Active Substance: ERGOCALCIFEROL
     Dosage: UNK, QD
     Route: 048
  8. LUBRIDERM                          /01007601/ [Concomitant]
     Active Substance: PARAFFIN
     Indication: ERYTHEMA
  9. MENTHOL                            /00482702/ [Concomitant]
     Indication: PRURITUS
     Dosage: UNK
     Route: 061
  10. CEFALEXIN                          /00145502/ [Concomitant]
     Dosage: 500 MILLIGRAM, QID
     Route: 048
  11. MAXALT-MLT [Concomitant]
     Active Substance: RIZATRIPTAN BENZOATE
     Dosage: 10 MILLIGRAM
     Route: 048
  12. PROMETHAZINE [Concomitant]
     Active Substance: PROMETHAZINE HYDROCHLORIDE
     Dosage: 12.5 MILLIGRAM
     Route: 048
  13. TAK-659 [Suspect]
     Active Substance: MIVAVOTINIB CITRATE
     Indication: ACUTE MYELOID LEUKAEMIA
     Dosage: 110 MILLIGRAM
     Route: 048
     Dates: start: 20200113, end: 20200307
  14. LUBRIDERM                          /01007601/ [Concomitant]
     Active Substance: PARAFFIN
     Indication: PRURITUS
     Dosage: UNK
     Route: 061
  15. OXYCODONE AND ACETAMINOPHEN [Concomitant]
     Active Substance: ACETAMINOPHEN\OXYCODONE HYDROCHLORIDE
     Dosage: UNK
     Route: 048
  16. BIOTIN [Concomitant]
     Active Substance: BIOTIN
     Dosage: UNK, QD
     Route: 048
  17. MENTHOL                            /00482702/ [Concomitant]
     Indication: ERYTHEMA
  18. MULTIVITAMIN                       /07504101/ [Concomitant]
     Active Substance: VITAMINS
     Dosage: UNK UNK, QD
     Route: 048
  19. FLUOCINONIDE. [Concomitant]
     Active Substance: FLUOCINONIDE
     Indication: PRURITUS
     Dosage: UNK
     Route: 061

REACTIONS (1)
  - Febrile neutropenia [Recovered/Resolved]

NARRATIVE: CASE EVENT DATE: 20200307
